FAERS Safety Report 18055067 (Version 2)
Quarter: 2020Q3

REPORT INFORMATION
  Report Type: Spontaneous
  Country: US (occurrence: US)
  Receive Date: 20200722
  Receipt Date: 20200724
  Transmission Date: 20201103
  Serious: Yes (Death, Other)
  Sender: FDA-Public Use
  Company Number: US-PFIZER INC-2020074181

PATIENT
  Age: 80 Year
  Sex: Female
  Weight: 47.63 kg

DRUGS (3)
  1. VELETRI [Concomitant]
     Active Substance: EPOPROSTENOL
     Indication: VASODILATION PROCEDURE
     Dosage: 1.5 MG, (1.5MG CONTINUOUS 24 HOUR PUMP)
  2. REVATIO [Suspect]
     Active Substance: SILDENAFIL CITRATE
     Indication: PULMONARY HYPERTENSION
     Dosage: 20 MG, 3X/DAY
     Route: 048
     Dates: end: 20200718
  3. MULTAQ [Concomitant]
     Active Substance: DRONEDARONE
     Indication: CARDIAC DISORDER
     Dosage: 400 MG, 2X/DAY
     Route: 048

REACTIONS (1)
  - Lung neoplasm malignant [Fatal]
